FAERS Safety Report 21542115 (Version 1)
Quarter: 2022Q4

REPORT INFORMATION
  Report Type: Other
  Country: CN (occurrence: CN)
  Receive Date: 20221102
  Receipt Date: 20221102
  Transmission Date: 20230113
  Serious: Yes (Other)
  Sender: FDA-Public Use
  Company Number: CN-GE HEALTHCARE-2022CSU007782

PATIENT
  Age: 45 Year
  Sex: Female
  Weight: 55 kg

DRUGS (2)
  1. OMNIPAQUE [Suspect]
     Active Substance: IOHEXOL
     Indication: Computerised tomogram
     Dosage: 100 ML, SINGLE
     Route: 040
     Dates: start: 20221019, end: 20221019
  2. OMNIPAQUE [Suspect]
     Active Substance: IOHEXOL
     Indication: Pulmonary mass

REACTIONS (7)
  - Mouth breathing [Recovering/Resolving]
  - Palpitations [Recovering/Resolving]
  - Tremor [Recovering/Resolving]
  - Unresponsive to stimuli [Recovering/Resolving]
  - Hypoaesthesia [Recovering/Resolving]
  - Headache [Recovering/Resolving]
  - Peripheral coldness [Recovering/Resolving]

NARRATIVE: CASE EVENT DATE: 20221019
